FAERS Safety Report 4785878-4 (Version None)
Quarter: 2005Q3

REPORT INFORMATION
  Report Type: 
  Country: None (occurrence: None)
  Receive Date: 20050929
  Receipt Date: 20050919
  Transmission Date: 20060218
  Serious: Yes (Death)
  Sender: FDA-Public Use
  Company Number: DSA_27110_2005

PATIENT
  Age: 52 Year

DRUGS (3)
  1. DILTIAZEM [Suspect]
     Dosage: DF
  2. ACETAMINOPHEN [Suspect]
     Dosage: DF PO
     Route: 048
  3. ETHANOL [Suspect]
     Dosage: DF PO
     Route: 048

REACTIONS (3)
  - ALCOHOL USE [None]
  - COMPLETED SUICIDE [None]
  - MULTIPLE DRUG OVERDOSE [None]
